FAERS Safety Report 17340330 (Version 1)
Quarter: 2020Q1

REPORT INFORMATION
  Report Type: Spontaneous
  Country: US (occurrence: US)
  Receive Date: 20200114
  Receipt Date: 20200114
  Transmission Date: 20200409
  Serious: Yes (Hospitalization)
  Sender: FDA-Public Use
  Company Number: None

PATIENT
  Age: 57 Year
  Sex: Female

DRUGS (13)
  1. REMODULIN [Suspect]
     Active Substance: TREPROSTINIL
     Indication: PULMONARY ARTERIAL HYPERTENSION
     Route: 042
  2. TORSEMIDE. [Concomitant]
     Active Substance: TORSEMIDE
  3. WARFARIN [Concomitant]
     Active Substance: WARFARIN
  4. ANTIFUNGAL CRE [Concomitant]
  5. METOCLOPRAM [Concomitant]
     Active Substance: METOCLOPRAMIDE
  6. MOXIFLOXACIN. [Concomitant]
     Active Substance: MOXIFLOXACIN
  7. PANTOPRAZOLE [Concomitant]
     Active Substance: PANTOPRAZOLE
  8. VITAMIN D [Concomitant]
     Active Substance: VITAMIN D NOS
  9. SPIRONOLACT [Concomitant]
     Active Substance: SPIRONOLACTONE
  10. DICYCLOMINE [Concomitant]
     Active Substance: DICYCLOMINE HYDROCHLORIDE
  11. ONDANSETRON [Concomitant]
     Active Substance: ONDANSETRON
  12. RANITIDINE. [Concomitant]
     Active Substance: RANITIDINE
  13. TADALAFIL. [Concomitant]
     Active Substance: TADALAFIL

REACTIONS (4)
  - Cardiac disorder [None]
  - Near death experience [None]
  - Fluid retention [None]
  - Lung disorder [None]

NARRATIVE: CASE EVENT DATE: 20180101
